FAERS Safety Report 12285961 (Version 1)
Quarter: 2016Q2

REPORT INFORMATION
  Report Type: Spontaneous
  Country: US (occurrence: None)
  Receive Date: 20160419
  Receipt Date: 20160419
  Transmission Date: 20160815
  Serious: Yes (Death)
  Sender: FDA-Public Use
  Company Number: None

PATIENT
  Age: 83 Year
  Sex: Female

DRUGS (1)
  1. TOBRAMYCIN 300MG/5ML [Suspect]
     Active Substance: TOBRAMYCIN
     Indication: FIBROSIS
     Dosage: 300MG/5 ML QD INHALATION
     Route: 055
     Dates: start: 20150806, end: 20160418

REACTIONS (1)
  - Death [None]

NARRATIVE: CASE EVENT DATE: 20160402
